FAERS Safety Report 10465637 (Version 2)
Quarter: 2014Q3

REPORT INFORMATION
  Report Type: Other
  Country: DE (occurrence: DE)
  Receive Date: 20140920
  Receipt Date: 20140920
  Transmission Date: 20150326
  Serious: Yes (Death, Hospitalization, Other)
  Sender: FDA-Public Use
  Company Number: DE-AUROBINDO-AUR-APL-2013-09911

PATIENT
  Age: 49 Year
  Sex: Male

DRUGS (11)
  1. RAMIPRIL AUROBINDO TABLETTEN 10 MG [Suspect]
     Active Substance: RAMIPRIL
     Indication: PRODUCT USED FOR UNKNOWN INDICATION
     Dosage: 10 MG,DAILY,
     Route: 048
     Dates: start: 2010
  2. TRILEPTAL [Suspect]
     Active Substance: OXCARBAZEPINE
     Indication: PRODUCT USED FOR UNKNOWN INDICATION
     Dosage: 1200 MG,DAILY,
     Route: 048
     Dates: start: 2009
  3. BELOC ZOK [Concomitant]
     Active Substance: METOPROLOL SUCCINATE
     Indication: PRODUCT USED FOR UNKNOWN INDICATION
     Dosage: 95 MG,DAILY,
     Route: 048
  4. NORTRIPTYLINE [Concomitant]
     Active Substance: NORTRIPTYLINE
     Indication: PRODUCT USED FOR UNKNOWN INDICATION
     Dosage: 100 MG,DAILY,
     Route: 048
     Dates: start: 2010, end: 20130108
  5. KREON [Concomitant]
     Active Substance: PANCRELIPASE
     Indication: PRODUCT USED FOR UNKNOWN INDICATION
     Dosage: 120000 IU,DAILY,
     Route: 048
     Dates: start: 2011
  6. AMLODIPINE [Concomitant]
     Active Substance: AMLODIPINE BESYLATE
     Indication: PRODUCT USED FOR UNKNOWN INDICATION
     Dosage: 5 MG,DAILY,
     Route: 048
     Dates: start: 2010
  7. ASPIRIN. [Concomitant]
     Active Substance: ASPIRIN
     Indication: PRODUCT USED FOR UNKNOWN INDICATION
     Dosage: 100 MG,DAILY,
     Route: 048
     Dates: start: 2010
  8. NOVALGIN [Concomitant]
     Active Substance: METAMIZOLE SODIUM
     Indication: PRODUCT USED FOR UNKNOWN INDICATION
     Dosage: 2 G,DAILY,
     Route: 048
     Dates: start: 2011
  9. PANTOZOL [Suspect]
     Active Substance: PANTOPRAZOLE SODIUM
     Indication: PRODUCT USED FOR UNKNOWN INDICATION
     Dosage: 80 MG,DAILY,
     Route: 048
  10. PARACETAMOL [Concomitant]
     Active Substance: ACETAMINOPHEN
     Indication: PRODUCT USED FOR UNKNOWN INDICATION
     Dosage: 2 G,DAILY,
     Route: 048
     Dates: start: 2011
  11. LYRICA [Concomitant]
     Active Substance: PREGABALIN
     Indication: PRODUCT USED FOR UNKNOWN INDICATION
     Dosage: 150 MG,DAILY,
     Route: 048
     Dates: start: 2009

REACTIONS (14)
  - Road traffic accident [Unknown]
  - Headache [Unknown]
  - Pneumonia [Unknown]
  - Multi-organ failure [Unknown]
  - Chest pain [Unknown]
  - Sepsis [Unknown]
  - Renal failure [Unknown]
  - Generalised tonic-clonic seizure [Unknown]
  - Acute respiratory distress syndrome [Unknown]
  - Pancreatitis [Unknown]
  - Depression [Unknown]
  - Hyponatraemia [Not Recovered/Not Resolved]
  - Delirium [Unknown]
  - Gamma-glutamyltransferase increased [Unknown]

NARRATIVE: CASE EVENT DATE: 2009
